FAERS Safety Report 7770152-4 (Version None)
Quarter: 2011Q3

REPORT INFORMATION
  Report Type: 
  Country: None (occurrence: None)
  Receive Date: 20110922
  Receipt Date: 20110224
  Transmission Date: 20111222
  Serious: No
  Sender: FDA-Public Use
  Company Number: US-ASTRAZENECA-2011SE10311

PATIENT
  Age: 65 Year
  Sex: Female
  Weight: 62.1 kg

DRUGS (8)
  1. SEROQUEL [Suspect]
     Indication: ANXIETY
     Route: 048
  2. SEROQUEL [Suspect]
     Indication: BIPOLAR DISORDER
     Route: 048
  3. CHOLESTEROL MEDICATION [Concomitant]
  4. THYROID SUPPLIMENT [Concomitant]
  5. SEROQUEL [Suspect]
     Route: 048
     Dates: start: 20060101
  6. SEROQUEL [Suspect]
     Route: 048
     Dates: start: 20060101
  7. SEROQUEL [Suspect]
     Indication: DEPRESSION
     Route: 048
  8. SEROQUEL [Suspect]
     Route: 048
     Dates: start: 20060101

REACTIONS (7)
  - NO ADVERSE EVENT [None]
  - HYPOTHYROIDISM [None]
  - INSOMNIA [None]
  - THERAPEUTIC RESPONSE UNEXPECTED [None]
  - ILL-DEFINED DISORDER [None]
  - BLOOD CHOLESTEROL INCREASED [None]
  - DRUG INEFFECTIVE [None]
